FAERS Safety Report 5406636-3 (Version None)
Quarter: 2007Q3

REPORT INFORMATION
  Report Type: 
  Country: None (occurrence: None)
  Receive Date: 20070806
  Receipt Date: 20070725
  Transmission Date: 20080115
  Serious: Yes (Other)
  Sender: FDA-Public Use
  Company Number: US-PFIZER INC-2007062940

PATIENT
  Sex: Male
  Weight: 86.363 kg

DRUGS (4)
  1. CHANTIX [Suspect]
     Indication: SMOKING CESSATION THERAPY
     Dates: start: 20070101, end: 20070101
  2. LITHIUM CARBONATE [Suspect]
     Indication: MENTAL DISORDER
  3. LORAZEPAM [Concomitant]
     Indication: SLEEP DISORDER
  4. MULTIVITAMIN [Concomitant]
     Dosage: FREQ:DAILY

REACTIONS (3)
  - BLADDER DISTENSION [None]
  - DISTURBANCE IN ATTENTION [None]
  - LUNG NEOPLASM MALIGNANT [None]
